FAERS Safety Report 8881454 (Version 1)
Quarter: 2012Q4

REPORT INFORMATION
  Report Type: Report from Study
  Country: ES (occurrence: ES)
  Receive Date: 20121101
  Receipt Date: 20121101
  Transmission Date: 20130627
  Serious: Yes (Other)
  Sender: FDA-Public Use
  Company Number: ES-ROCHE-1151271

PATIENT
  Sex: Female

DRUGS (1)
  1. PERTUZUMAB [Suspect]
     Indication: BREAST CANCER METASTATIC
     Route: 065

REACTIONS (2)
  - Drug ineffective [Unknown]
  - Hepatic function abnormal [Unknown]
